FAERS Safety Report 6711204-7 (Version None)
Quarter: 2010Q2

REPORT INFORMATION
  Report Type: 
  Country: None (occurrence: None)
  Receive Date: 20100429
  Receipt Date: 20090629
  Transmission Date: 20101027
  Serious: Yes (Other)
  Sender: FDA-Public Use
  Company Number: 2009PV038528

PATIENT
  Age: 48 Year
  Sex: Female
  Weight: 83.0083 kg

DRUGS (7)
  1. SYMLIN [Suspect]
     Indication: TYPE 1 DIABETES MELLITUS
     Dosage: 60 MCG;ITD;SC; 45 MCG;TID;SC; 30 MCG;TID; SC; 15 MCG;TID; SC
     Route: 058
     Dates: start: 20070101, end: 20070101
  2. SYMLIN [Suspect]
     Indication: TYPE 1 DIABETES MELLITUS
     Dosage: 60 MCG;ITD;SC; 45 MCG;TID;SC; 30 MCG;TID; SC; 15 MCG;TID; SC
     Route: 058
     Dates: start: 20090101, end: 20090101
  3. SYMLIN [Suspect]
     Indication: TYPE 1 DIABETES MELLITUS
     Dosage: 60 MCG;ITD;SC; 45 MCG;TID;SC; 30 MCG;TID; SC; 15 MCG;TID; SC
     Route: 058
     Dates: start: 20090101, end: 20090101
  4. SYMLIN [Suspect]
     Indication: TYPE 1 DIABETES MELLITUS
     Dosage: 60 MCG;ITD;SC; 45 MCG;TID;SC; 30 MCG;TID; SC; 15 MCG;TID; SC
     Route: 058
     Dates: start: 20090501, end: 20090501
  5. SYMLIN [Suspect]
     Indication: TYPE 1 DIABETES MELLITUS
     Dosage: 60 MCG;ITD;SC; 45 MCG;TID;SC; 30 MCG;TID; SC; 15 MCG;TID; SC
     Route: 058
     Dates: start: 20090501, end: 20090501
  6. HUMALOG (CON.) [Concomitant]
  7. INSULIN (CON.) [Concomitant]

REACTIONS (3)
  - HYPOGLYCAEMIA [None]
  - HYPOGLYCAEMIA UNAWARENESS [None]
  - NAUSEA [None]
